FAERS Safety Report 23703766 (Version 1)
Quarter: 2024Q2

REPORT INFORMATION
  Report Type: Spontaneous
  Country: US (occurrence: US)
  Receive Date: 20240403
  Receipt Date: 20240403
  Transmission Date: 20240716
  Serious: Yes (Death)
  Sender: FDA-Public Use
  Company Number: US-Stemline Therapeutics, Inc.-2024ST002004

PATIENT
  Age: 80 Year
  Sex: Female

DRUGS (1)
  1. ORSERDU [Suspect]
     Active Substance: ELACESTRANT
     Indication: Product used for unknown indication
     Dosage: 86MG THREE TABLETS
     Route: 048
     Dates: start: 20230721

REACTIONS (1)
  - Death [Fatal]

NARRATIVE: CASE EVENT DATE: 20231222
